FAERS Safety Report 8958916 (Version 1)
Quarter: 2012Q4

REPORT INFORMATION
  Report Type: Spontaneous
  Country: MA (occurrence: None)
  Receive Date: 20121128
  Receipt Date: 20121128
  Transmission Date: 20130627
  Serious: Yes (Hospitalization)
  Sender: FDA-Public Use
  Company Number: INT_00150_2012

PATIENT
  Age: 35 Year
  Sex: Male

DRUGS (1)
  1. CEFTAZIDIME [Suspect]
     Indication: PYREXIA
     Dosage: (DF)

REACTIONS (2)
  - Cutaneous vasculitis [None]
  - Acute myeloid leukaemia [None]
